FAERS Safety Report 15644868 (Version 1)
Quarter: 2018Q4

REPORT INFORMATION
  Report Type: Spontaneous
  Country: DE (occurrence: DE)
  Receive Date: 20181121
  Receipt Date: 20181121
  Transmission Date: 20190205
  Serious: Yes (Death, Other)
  Sender: FDA-Public Use
  Company Number: DE-ELI_LILLY_AND_COMPANY-DE201811008861

PATIENT
  Sex: Male
  Weight: 70 kg

DRUGS (1)
  1. ZYPREXA [Suspect]
     Active Substance: OLANZAPINE
     Indication: PRODUCT USED FOR UNKNOWN INDICATION
     Dosage: 15 MG, UNKNOWN
     Route: 048

REACTIONS (8)
  - Paranoia [Unknown]
  - Panic attack [Unknown]
  - Myocardial infarction [Unknown]
  - Suicidal ideation [Unknown]
  - Liver injury [Unknown]
  - Death [Fatal]
  - Pancreatitis [Unknown]
  - Anxiety [Unknown]
